FAERS Safety Report 12341507 (Version 43)
Quarter: 2022Q1

REPORT INFORMATION
  Report Type: Report from Study
  Country: CA (occurrence: CA)
  Receive Date: 20160506
  Receipt Date: 20220208
  Transmission Date: 20220423
  Serious: Yes (Hospitalization, Other)
  Sender: FDA-Public Use
  Company Number: PHHY2016CA003462

PATIENT
  Age: 79 Year
  Sex: Male

DRUGS (20)
  1. SANDOSTATIN [Suspect]
     Active Substance: OCTREOTIDE ACETATE
     Indication: Carcinoid tumour of the small bowel
     Dosage: 100 UG, TID
     Route: 058
     Dates: start: 201512
  2. SANDOSTATIN [Suspect]
     Active Substance: OCTREOTIDE ACETATE
  3. SANDOSTATIN [Suspect]
     Active Substance: OCTREOTIDE ACETATE
  4. SANDOSTATIN LAR DEPOT [Suspect]
     Active Substance: OCTREOTIDE ACETATE
     Indication: Carcinoid tumour of the small bowel
     Dosage: 30 MG, QMO (EVERY 4 WEEKS)
     Route: 030
     Dates: start: 20160128
  5. SANDOSTATIN LAR DEPOT [Suspect]
     Active Substance: OCTREOTIDE ACETATE
     Indication: Carcinoid syndrome
     Dosage: 40 MG, QMO {EVERY 4 WEEKS}
     Route: 030
     Dates: start: 20160128, end: 20160421
  6. SANDOSTATIN LAR DEPOT [Suspect]
     Active Substance: OCTREOTIDE ACETATE
     Indication: Metastases to liver
     Dosage: 40 MG, QMO (EVERY 4 WEEKS)
     Route: 030
     Dates: start: 20160506
  7. SANDOSTATIN LAR DEPOT [Suspect]
     Active Substance: OCTREOTIDE ACETATE
     Indication: Metastasis
     Dosage: 40 MG, QMO (EVERY 4 WEEKS)
     Route: 030
  8. SANDOSTATIN LAR DEPOT [Suspect]
     Active Substance: OCTREOTIDE ACETATE
     Indication: Abdominal discomfort
     Dosage: UNK UNK, BID (2 X 20MG TWICE)
     Route: 065
     Dates: start: 20181109
  9. BACLOFEN [Suspect]
     Active Substance: BACLOFEN
     Indication: Product used for unknown indication
     Dosage: UNK
     Route: 065
  10. AMLODIPINE [Concomitant]
     Active Substance: AMLODIPINE BESYLATE
     Indication: Hypertension
     Dosage: 5 MG, QD
     Route: 065
     Dates: start: 20161210
  11. AMLODIPINE [Concomitant]
     Active Substance: AMLODIPINE BESYLATE
     Dosage: 5 MG, QD
     Route: 048
     Dates: start: 20191129
  12. PERINDOPRIL [Concomitant]
     Active Substance: PERINDOPRIL
     Indication: Blood pressure increased
     Dosage: 5 MG, QD STRENGTH 5 MG
     Route: 065
     Dates: start: 20161210
  13. PERINDOPRIL [Concomitant]
     Active Substance: PERINDOPRIL
     Dosage: 2 MG, QD STRENGTH 2 MG
     Route: 065
     Dates: end: 2016
  14. PERINDOPRIL [Concomitant]
     Active Substance: PERINDOPRIL
     Dosage: 2 MG, QD
     Route: 065
     Dates: end: 20190712
  15. ASPIRIN [Concomitant]
     Active Substance: ASPIRIN
     Indication: Product used for unknown indication
     Dosage: UNK
     Route: 065
  16. UNSPECIFIED INGREDIENT [Concomitant]
     Active Substance: UNSPECIFIED INGREDIENT
     Indication: Product used for unknown indication
     Dosage: UNK
     Route: 065
  17. ERTAPENEM [Concomitant]
     Active Substance: ERTAPENEM
     Indication: Product used for unknown indication
     Dosage: 30 MG, QD (1,000MG VIA PICC LINE INFUSED 30 MG ONCE DAILY)
     Route: 065
     Dates: start: 20161208
  18. HYDROMORPHONE [Concomitant]
     Active Substance: HYDROMORPHONE
     Indication: Product used for unknown indication
     Dosage: 1 MG, Q3H
     Route: 065
  19. METOCLOPRAMIDE [Concomitant]
     Active Substance: METOCLOPRAMIDE
     Indication: Product used for unknown indication
     Dosage: 5 MG
     Route: 065
  20. CREON [Concomitant]
     Active Substance: PANCRELIPASE AMYLASE\PANCRELIPASE LIPASE\PANCRELIPASE PROTEASE
     Indication: Product used for unknown indication
     Dosage: 8 DF, QD
     Route: 065
     Dates: start: 20211025

REACTIONS (40)
  - Scar [Unknown]
  - Liver abscess [Unknown]
  - Intestinal obstruction [Unknown]
  - Cholelithiasis [Unknown]
  - Abdominal adhesions [Unknown]
  - Throat irritation [Unknown]
  - Enlarged uvula [Unknown]
  - Mobility decreased [Unknown]
  - Metastases to liver [Unknown]
  - Blood pressure increased [Unknown]
  - Bladder neoplasm [Unknown]
  - Heart rate increased [Unknown]
  - Nasal polyps [Unknown]
  - Incision site complication [Unknown]
  - Hepatic lesion [Unknown]
  - Erythema [Unknown]
  - Acne [Unknown]
  - Weight decreased [Unknown]
  - Faeces soft [Unknown]
  - Body temperature decreased [Unknown]
  - Flushing [Unknown]
  - Influenza [Unknown]
  - Sinusitis [Unknown]
  - Sciatica [Unknown]
  - Chest pain [Unknown]
  - Chest discomfort [Unknown]
  - Blood urine present [Unknown]
  - Incorrect dose administered [Unknown]
  - Intercepted product administration error [Unknown]
  - Pruritus [Unknown]
  - Diarrhoea [Unknown]
  - Faeces discoloured [Unknown]
  - Abdominal distension [Unknown]
  - Flatulence [Unknown]
  - Rash [Unknown]
  - Constipation [Recovering/Resolving]
  - Injection site pain [Recovered/Resolved]
  - Injection site haemorrhage [Unknown]
  - Injection site pain [Not Recovered/Not Resolved]
  - Bronchitis [Unknown]

NARRATIVE: CASE EVENT DATE: 20160206
